FAERS Safety Report 9833071 (Version 2)
Quarter: 2014Q1

REPORT INFORMATION
  Report Type: Spontaneous
  Country: CH (occurrence: CH)
  Receive Date: 20140121
  Receipt Date: 20140122
  Transmission Date: 20141002
  Serious: Yes (Life-Threatening, Other)
  Sender: FDA-Public Use
  Company Number: PHHY2013CH155164

PATIENT
  Age: 31 Year
  Sex: Male

DRUGS (3)
  1. ESCITALOPRAM [Suspect]
  2. METHADONE [Interacting]
     Dosage: 50-60 MG, DAILY
     Route: 048
  3. ONDANSETRON [Interacting]
     Route: 042

REACTIONS (19)
  - Torsade de pointes [Unknown]
  - Ventricular tachyarrhythmia [Unknown]
  - Ventricular tachycardia [Unknown]
  - Electrocardiogram QT prolonged [Recovered/Resolved]
  - Abdominal pain upper [Unknown]
  - Nausea [Unknown]
  - Choking [Unknown]
  - Unresponsive to stimuli [Unknown]
  - Loss of consciousness [Unknown]
  - Pulse absent [Unknown]
  - Respiration abnormal [Unknown]
  - Grand mal convulsion [Unknown]
  - Hypomagnesaemia [Unknown]
  - Hypokalaemia [Unknown]
  - Electrocardiogram repolarisation abnormality [Unknown]
  - Stress cardiomyopathy [Unknown]
  - Drug administration error [Unknown]
  - Drug interaction [Unknown]
  - Drug withdrawal syndrome [Unknown]
